FAERS Safety Report 23236689 (Version 2)
Quarter: 2023Q4

REPORT INFORMATION
  Report Type: Report from Study
  Country: US (occurrence: US)
  Receive Date: 20231128
  Receipt Date: 20231227
  Transmission Date: 20240110
  Serious: Yes (Other)
  Sender: FDA-Public Use
  Company Number: US-TAIHOP-2023-010014

PATIENT
  Sex: Female

DRUGS (5)
  1. LONSURF [Suspect]
     Active Substance: TIPIRACIL HYDROCHLORIDE\TRIFLURIDINE
     Indication: Rectal cancer
     Dosage: CYCLE UNKNOWN
     Route: 048
     Dates: start: 20231021
  2. ATROPINE SULFATE\DIPHENOXYLATE [Concomitant]
     Active Substance: ATROPINE SULFATE\DIPHENOXYLATE
     Indication: Product used for unknown indication
  3. GABAPENTIN [Concomitant]
     Active Substance: GABAPENTIN
     Indication: Product used for unknown indication
  4. METAMUCIL [Concomitant]
     Active Substance: PLANTAGO SEED
     Indication: Product used for unknown indication
     Dosage: POW ORG
  5. HYDROCHLOROTHIAZIDE\VALSARTAN [Concomitant]
     Active Substance: HYDROCHLOROTHIAZIDE\VALSARTAN
     Indication: Product used for unknown indication
     Dosage: 160-12.5

REACTIONS (7)
  - Muscular weakness [Not Recovered/Not Resolved]
  - Hypersomnia [Not Recovered/Not Resolved]
  - Headache [Not Recovered/Not Resolved]
  - Pain in extremity [Not Recovered/Not Resolved]
  - Diarrhoea [Not Recovered/Not Resolved]
  - Inappropriate schedule of product administration [Unknown]
  - Dizziness [Unknown]
